FAERS Safety Report 8600546-6 (Version None)
Quarter: 2012Q3

REPORT INFORMATION
  Report Type: 
  Country: None (occurrence: None)
  Receive Date: 20120808
  Receipt Date: 20120808
  Transmission Date: 20120928
  Serious: Yes (Life-Threatening, Disabling, Other)
  Sender: FDA-Public Use
  Company Number: None

PATIENT
  Age: 48 Year
  Sex: Female
  Weight: 57.1532 kg

DRUGS (2)
  1. LEVOTHYROXINE SODIUM [Suspect]
     Dosage: ALL 1X DAY ORAL
     Route: 048
     Dates: start: 20070101
  2. SYNTHROID [Suspect]
     Indication: THYROIDECTOMY
     Dosage: ALL 1X DAY PILL
     Dates: start: 20040101, end: 20080101

REACTIONS (17)
  - ORGAN FAILURE [None]
  - AUTOIMMUNE THYROIDITIS [None]
  - RESPIRATORY DISORDER [None]
  - PRODUCT SUBSTITUTION ISSUE [None]
  - PAIN [None]
  - BEDRIDDEN [None]
  - THYROID NEOPLASM [None]
  - IODINE DEFICIENCY [None]
  - HEART RATE INCREASED [None]
  - ARTHRITIS [None]
  - INTERVERTEBRAL DISC DISORDER [None]
  - PRODUCT QUALITY ISSUE [None]
  - GAIT DISTURBANCE [None]
  - FIBROMYALGIA [None]
  - CRYING [None]
  - TRI-IODOTHYRONINE DECREASED [None]
  - INADEQUATE ANALGESIA [None]
